FAERS Safety Report 4355503-5 (Version None)
Quarter: 2004Q2

REPORT INFORMATION
  Report Type: 
  Country: None (occurrence: None)
  Receive Date: 20040505
  Receipt Date: 20040423
  Transmission Date: 20050107
  Serious: Yes (Other)
  Sender: FDA-Public Use
  Company Number: 233067

PATIENT
  Age: 71 Year
  Sex: Male
  Weight: 70.2 kg

DRUGS (5)
  1. NOVONORM (NOVONORM) TABL., 1 MG [Suspect]
     Indication: DIABETES MELLITUS NON-INSULIN-DEPENDENT
     Dosage: 3 MG, QD, PER ORAL
     Route: 048
     Dates: start: 20030505, end: 20030717
  2. LEXATIN (BROMAZEPAM0 [Concomitant]
  3. OMEPRAZOLE [Concomitant]
  4. EURADAL (BISOPROLOL FUMARATE) [Concomitant]
  5. SALINE MIXTURE (AMMONIUM ACETATE, CAMPHOR WATER, SODIUM CITRATE, SODIU [Concomitant]

REACTIONS (2)
  - CYSTITIS NONINFECTIVE [None]
  - PANCREATIC CARCINOMA [None]
